FAERS Safety Report 9203745 (Version 1)
Quarter: 2013Q1

REPORT INFORMATION
  Report Type: Spontaneous
  Country: ES (occurrence: None)
  Receive Date: 20130329
  Receipt Date: 20130329
  Transmission Date: 20140127
  Serious: Yes (Other)
  Sender: FDA-Public Use
  Company Number: 2013STPI000114

PATIENT
  Age: 31 Year
  Sex: Female

DRUGS (1)
  1. CARNITOR [Suspect]
     Indication: MESOTHERAPY

REACTIONS (2)
  - Injection site granuloma [None]
  - Off label use [None]
